FAERS Safety Report 15678644 (Version 1)
Quarter: 2018Q4

REPORT INFORMATION
  Report Type: Spontaneous
  Country: US (occurrence: US)
  Receive Date: 20181130
  Receipt Date: 20181130
  Transmission Date: 20190205
  Serious: Yes (Hospitalization)
  Sender: FDA-Public Use
  Company Number: None

PATIENT
  Age: 30 Year
  Sex: Male

DRUGS (2)
  1. EXJADE [Suspect]
     Active Substance: DEFERASIROX
     Route: 048
     Dates: start: 20130729, end: 20181121
  2. EXJADE [Concomitant]
     Active Substance: DEFERASIROX
     Dates: start: 20130729

REACTIONS (1)
  - Pain [None]

NARRATIVE: CASE EVENT DATE: 20181129
